FAERS Safety Report 8732468 (Version 2)
Quarter: 2015Q2

REPORT INFORMATION
  Report Type: Report from Study
  Country: US (occurrence: US)
  Receive Date: 20120912
  Receipt Date: 20150629
  Transmission Date: 20150821
  Serious: Yes (Hospitalization, Other)
  Sender: FDA-Public Use
  Company Number: US-ROCHE-1100980

PATIENT
  Age: 52 Year
  Sex: Male

DRUGS (6)
  1. ACTIVASE [Suspect]
     Active Substance: ALTEPLASE
     Route: 040
  2. ACTIVASE [Suspect]
     Active Substance: ALTEPLASE
     Dosage: 100 CC/HOUR
     Route: 065
  3. XYLOCAINE [Concomitant]
     Active Substance: LIDOCAINE HYDROCHLORIDE
     Route: 065
  4. ACTIVASE [Suspect]
     Active Substance: ALTEPLASE
     Dosage: 35 CC/HOUR
     Route: 065
  5. NITROGLYCERIN SUBLINGUAL [Concomitant]
     Indication: CHEST PAIN
     Route: 060
  6. ACTIVASE [Suspect]
     Active Substance: ALTEPLASE
     Indication: ACUTE MYOCARDIAL INFARCTION
     Route: 065

REACTIONS (8)
  - Cardiac arrest [Unknown]
  - Ventricular fibrillation [Unknown]
  - Anxiety [Unknown]
  - Postinfarction angina [Unknown]
  - Chest pain [Unknown]
  - Dyspnoea [Unknown]
  - Nasopharyngitis [Unknown]
  - Cold sweat [Unknown]
